FAERS Safety Report 6407112-1 (Version None)
Quarter: 2009Q4

REPORT INFORMATION
  Report Type: 
  Country: None (occurrence: None)
  Receive Date: 20091014
  Receipt Date: 20090929
  Transmission Date: 20100525
  Serious: Yes (Hospitalization, Other)
  Sender: FDA-Public Use
  Company Number: 20090325

PATIENT
  Age: 36 Year
  Sex: Female

DRUGS (7)
  1. VENOFER [Suspect]
     Dosage: 300 MG, INTRAVENOUS
     Route: 042
     Dates: start: 20090710, end: 20090712
  2. PARACETAMOL [Concomitant]
  3. KETOPROFEN [Concomitant]
  4. TARDYFERON [Concomitant]
  5. ESOMEPRAZOLE MAGNESIUM [Concomitant]
  6. ENOXAPARIN SODIUM [Concomitant]
  7. NALBUPHINE [Concomitant]

REACTIONS (6)
  - CAESAREAN SECTION [None]
  - DRUG EXPOSURE DURING PREGNANCY [None]
  - ECTOPIC PREGNANCY [None]
  - INFUSION SITE OEDEMA [None]
  - INFUSION SITE PAIN [None]
  - THROMBOPHLEBITIS SUPERFICIAL [None]
